FAERS Safety Report 10467751 (Version 2)
Quarter: 2014Q4

REPORT INFORMATION
  Report Type: Report from Study
  Country: JP (occurrence: JP)
  Receive Date: 20140922
  Receipt Date: 20141215
  Transmission Date: 20150528
  Serious: Yes (Other)
  Sender: FDA-Public Use
  Company Number: JP-009507513-1409JPN007131

PATIENT
  Age: 70 Year
  Sex: Female
  Weight: 56 kg

DRUGS (7)
  1. LIVACT [Concomitant]
     Active Substance: AMINO ACIDS
     Dosage: 12.45 G ONCE IN ONE DAY
     Route: 048
  2. SIMEPREVIR [Suspect]
     Active Substance: SIMEPREVIR
     Indication: CHRONIC HEPATITIS C
     Dosage: 100 MG, ONCE A DAY
     Route: 048
     Dates: start: 20140507, end: 20140729
  3. AMLODIN (AMLODIPINE BESYLATE) [Concomitant]
     Active Substance: AMLODIPINE BESYLATE
     Indication: HYPERTENSION
     Dosage: 5 MG, 1 IN 1 DAY
     Route: 048
  4. AMINOLEBAN EN [Concomitant]
     Active Substance: UNSPECIFIED INGREDIENT
     Indication: CHRONIC HEPATITIS C
     Dosage: 50 G, 1 IN 1 DAY
     Route: 048
  5. PEGINTRON [Suspect]
     Active Substance: PEGINTERFERON ALFA-2B
     Indication: CHRONIC HEPATITIS C
     Dosage: 1.5 MICROGRAM PER KILOGRAM, 1 IN 1 WEEK
     Route: 058
     Dates: start: 20140507
  6. RIBAVIRIN. [Suspect]
     Active Substance: RIBAVIRIN
     Indication: CHRONIC HEPATITIS C
     Dosage: 800 MG, 1 IN 1 DAY
     Route: 048
     Dates: start: 20140507
  7. JUVELA [Concomitant]
     Active Substance: .ALPHA.-TOCOPHEROL\RETINOL
     Indication: CHRONIC HEPATITIS C
     Dosage: 300 MG, 1 IN 1 DAY
     Route: 048

REACTIONS (8)
  - Nausea [Recovered/Resolved]
  - Platelet count decreased [Not Recovered/Not Resolved]
  - Haemoglobin decreased [Not Recovered/Not Resolved]
  - Hypertension [Recovered/Resolved]
  - Photosensitivity reaction [Recovered/Resolved]
  - Blood bilirubin increased [Recovering/Resolving]
  - Pyrexia [Not Recovered/Not Resolved]
  - Decreased appetite [Recovering/Resolving]

NARRATIVE: CASE EVENT DATE: 20140507
